FAERS Safety Report 8082868-3 (Version None)
Quarter: 2012Q1

REPORT INFORMATION
  Report Type: 
  Country: None (occurrence: None)
  Receive Date: 20120127
  Receipt Date: 20110125
  Transmission Date: 20120608
  Serious: No
  Sender: FDA-Public Use
  Company Number: US-ABBOTT-11P-163-0700537-00

PATIENT
  Age: 29 Year
  Sex: Male

DRUGS (2)
  1. ACETAMINOPHEN [Concomitant]
     Indication: PAIN
     Dosage: AS NEEDED
  2. HUMIRA [Suspect]
     Indication: CROHN'S DISEASE
     Dates: start: 20080801

REACTIONS (3)
  - DIARRHOEA [None]
  - DRUG INEFFECTIVE [None]
  - ABDOMINAL PAIN [None]
